FAERS Safety Report 21371913 (Version 1)
Quarter: 2022Q3

REPORT INFORMATION
  Report Type: Spontaneous
  Country: US (occurrence: US)
  Receive Date: 20220923
  Receipt Date: 20220923
  Transmission Date: 20221027
  Serious: No
  Sender: FDA-Public Use
  Company Number: US-GILEAD-2022-0598360

PATIENT

DRUGS (1)
  1. BIKTARVY [Suspect]
     Active Substance: BICTEGRAVIR SODIUM\EMTRICITABINE\TENOFOVIR ALAFENAMIDE FUMARATE
     Indication: HIV infection
     Dosage: UNK
     Route: 065
     Dates: start: 20210707

REACTIONS (9)
  - Throat irritation [Unknown]
  - Pyrexia [Unknown]
  - Fatigue [Unknown]
  - Tremor [Unknown]
  - Myalgia [Unknown]
  - Dry throat [Unknown]
  - Dry mouth [Unknown]
  - Cough [Unknown]
  - Weight increased [Unknown]

NARRATIVE: CASE EVENT DATE: 20210726
